FAERS Safety Report 8303650-5 (Version None)
Quarter: 2012Q2

REPORT INFORMATION
  Report Type: 
  Country: None (occurrence: None)
  Receive Date: 20120423
  Receipt Date: 20120418
  Transmission Date: 20120825
  Serious: Yes (Hospitalization, Other)
  Sender: FDA-Public Use
  Company Number: TR-PFIZER INC-2012048132

PATIENT
  Age: 86 Year
  Sex: Female

DRUGS (5)
  1. CORDARONE [Suspect]
     Dosage: 1 DF, SINGLE
     Route: 048
     Dates: end: 20110601
  2. PHOS-EX [Concomitant]
     Dosage: UNK
  3. KETOSTERIL [Concomitant]
     Dosage: UNK
  4. NEURONTIN [Concomitant]
     Dosage: UNK
     Dates: start: 20110601
  5. SURGAM [Concomitant]
     Dosage: UNK
     Dates: start: 20110601

REACTIONS (2)
  - BURNING SENSATION [None]
  - COMA [None]
